FAERS Safety Report 5703328-8 (Version None)
Quarter: 2008Q2

REPORT INFORMATION
  Report Type: 
  Country: None (occurrence: None)
  Receive Date: 20080411
  Receipt Date: 20080331
  Transmission Date: 20081010
  Serious: Yes (Other)
  Sender: FDA-Public Use
  Company Number: FI-PFIZER INC-2008028432

PATIENT
  Sex: Male

DRUGS (2)
  1. CHAMPIX [Suspect]
     Indication: SMOKING CESSATION THERAPY
     Route: 048
     Dates: start: 20080203, end: 20080101
  2. NASONEX [Concomitant]
     Route: 045

REACTIONS (2)
  - DYSARTHRIA [None]
  - PHARYNGEAL OEDEMA [None]
